FAERS Safety Report 16156110 (Version 2)
Quarter: 2019Q2

REPORT INFORMATION
  Report Type: Spontaneous
  Country: US (occurrence: US)
  Receive Date: 20190404
  Receipt Date: 20190503
  Transmission Date: 20190711
  Serious: No
  Sender: FDA-Public Use
  Company Number: US-JNJFOC-20190235642

PATIENT
  Age: 70 Year
  Sex: Female
  Weight: 53.98 kg

DRUGS (9)
  1. GARLIC. [Concomitant]
     Active Substance: GARLIC
     Indication: PRODUCT USED FOR UNKNOWN INDICATION
     Dosage: 2 WEEK AGO
     Route: 065
     Dates: end: 201903
  2. WOMENS ROGAINE UNSCENTED [Suspect]
     Active Substance: MINOXIDIL
     Route: 061
  3. VITAMINS NOS [Concomitant]
     Active Substance: VITAMINS
     Indication: ALOPECIA
     Route: 065
  4. VITAMIN E [Concomitant]
     Active Substance: .ALPHA.-TOCOPHEROL
     Indication: PRODUCT USED FOR UNKNOWN INDICATION
     Dosage: 2 WEEKS AGO
     Route: 065
     Dates: end: 201903
  5. VITAMIN B6 [Concomitant]
     Active Substance: PYRIDOXINE HYDROCHLORIDE
     Indication: SEIZURE
     Route: 065
  6. WOMENS ROGAINE UNSCENTED [Suspect]
     Active Substance: MINOXIDIL
     Indication: ALOPECIA
     Dosage: ABOUT A CAPFUL (1/2 CAPFUL TO 3/4 CAPFUL) EVERY EVENING
     Route: 061
     Dates: start: 20190204
  7. VITAMIN D3 [Concomitant]
     Active Substance: CHOLECALCIFEROL
     Indication: PRODUCT USED FOR UNKNOWN INDICATION
     Route: 065
     Dates: end: 201903
  8. ATORVASTATIN [Concomitant]
     Active Substance: ATORVASTATIN
     Indication: BLOOD CHOLESTEROL
     Dosage: MANY YEARS ON
     Route: 065
  9. LEVETIRACETAM. [Concomitant]
     Active Substance: LEVETIRACETAM
     Indication: SEIZURE
     Route: 065

REACTIONS (3)
  - Overdose [Unknown]
  - Alopecia [Recovered/Resolved]
  - Product residue present [Unknown]

NARRATIVE: CASE EVENT DATE: 201902
